FAERS Safety Report 4747255-1 (Version None)
Quarter: 2005Q3

REPORT INFORMATION
  Report Type: 
  Country: None (occurrence: None)
  Receive Date: 20050815
  Receipt Date: 20050509
  Transmission Date: 20060218
  Serious: No
  Sender: FDA-Public Use
  Company Number: USA050597637

PATIENT
  Age: 63 Year
  Sex: Male

DRUGS (6)
  1. CIALIS [Suspect]
     Indication: ERECTILE DYSFUNCTION
     Dosage: 20 MG
     Dates: start: 20050101
  2. METOPROLOL [Concomitant]
  3. LIPITOR [Concomitant]
  4. TRIAMTERENE [Concomitant]
  5. NIFEDIPINE [Concomitant]
  6. ASPIRIN [Concomitant]

REACTIONS (2)
  - INFLUENZA LIKE ILLNESS [None]
  - PENILE PAIN [None]
